FAERS Safety Report 11198963 (Version 1)
Quarter: 2015Q2

REPORT INFORMATION
  Report Type: Other
  Country: GB (occurrence: GB)
  Receive Date: 20150618
  Receipt Date: 20150618
  Transmission Date: 20150821
  Serious: Yes (Other)
  Sender: FDA-Public Use
  Company Number: GB-LUPIN PHARMACEUTICALS INC.-2015-00857

PATIENT
  Age: 67 Year
  Sex: Male

DRUGS (3)
  1. METHOTREXATE [Interacting]
     Active Substance: METHOTREXATE
     Indication: RHEUMATOID ARTHRITIS
     Route: 048
  2. AMOXICILLIN. [Interacting]
     Active Substance: AMOXICILLIN
     Indication: PROPHYLAXIS
     Route: 065
  3. CIPROFLOXACIN. [Suspect]
     Active Substance: CIPROFLOXACIN
     Indication: PROPHYLAXIS
     Route: 065

REACTIONS (2)
  - Arthritis [Recovered/Resolved]
  - Drug interaction [Unknown]
